FAERS Safety Report 7099436-2 (Version None)
Quarter: 2010Q4

REPORT INFORMATION
  Report Type: 
  Country: None (occurrence: None)
  Receive Date: 20101112
  Receipt Date: 20080917
  Transmission Date: 20110411
  Serious: No
  Sender: FDA-Public Use
  Company Number: US-KINGPHARMUSA00001-K200801088

PATIENT
  Sex: Female
  Weight: 66.213 kg

DRUGS (9)
  1. LEVOXYL [Suspect]
     Indication: THYROID DISORDER
     Dosage: 100 MCG, QD
     Route: 048
     Dates: start: 20080101, end: 20080701
  2. LEVOXYL [Suspect]
     Dosage: 112 MCG, QD
     Route: 048
     Dates: start: 20080701
  3. HYZAAR                             /01284801/ [Concomitant]
     Indication: BLOOD PRESSURE
  4. LISINOPRIL AND HYDROCHLOROTHIAZIDE [Concomitant]
     Indication: BLOOD PRESSURE
  5. LISINOPRIL [Concomitant]
     Indication: BLOOD PRESSURE
  6. PROPRANOLOL [Concomitant]
     Indication: BLOOD PRESSURE
  7. ^NEFICALI^ [Concomitant]
     Indication: BLOOD PRESSURE
  8. TENORMIN [Concomitant]
     Indication: BLOOD PRESSURE
  9. PLENDIL [Concomitant]
     Indication: BLOOD PRESSURE

REACTIONS (4)
  - ARTHRALGIA [None]
  - BLOOD PRESSURE INCREASED [None]
  - NERVOUSNESS [None]
  - POLLAKIURIA [None]
